FAERS Safety Report 8198317-0 (Version None)
Quarter: 2012Q1

REPORT INFORMATION
  Report Type: 
  Country: None (occurrence: None)
  Receive Date: 20120309
  Receipt Date: 20120227
  Transmission Date: 20120608
  Serious: Yes (Other)
  Sender: FDA-Public Use
  Company Number: PHFR2011GB06055

PATIENT
  Sex: Male

DRUGS (7)
  1. HALDOL [Concomitant]
     Dosage: 150 MG, UNK
     Route: 030
  2. OLANZAPINE [Concomitant]
     Dosage: 7.5 MG, UNK
  3. LITHIUM CARBONATE [Concomitant]
     Dosage: 1000 MG, UNK
     Route: 048
  4. BISOPROLOL FUMARATE [Concomitant]
     Route: 048
  5. CLOZARIL [Suspect]
     Indication: SCHIZOPHRENIA
  6. VALPROATE SODIUM [Concomitant]
     Dosage: 1000 MG, BID
     Route: 048
  7. ARIPIPRAZOLE [Concomitant]
     Dosage: 15 MG, UNK
     Route: 048

REACTIONS (6)
  - ANTIPSYCHOTIC DRUG LEVEL BELOW THERAPEUTIC [None]
  - HYPERLIPIDAEMIA [None]
  - OBESITY [None]
  - METABOLIC SYNDROME [None]
  - HYPERTENSION [None]
  - DIABETES MELLITUS [None]
